FAERS Safety Report 10192717 (Version 1)
Quarter: 2014Q2

REPORT INFORMATION
  Report Type: Spontaneous
  Country: US (occurrence: US)
  Receive Date: 20140523
  Receipt Date: 20140523
  Transmission Date: 20141212
  Serious: No
  Sender: FDA-Public Use
  Company Number: US-TEVA-483685USA

PATIENT
  Sex: Female

DRUGS (1)
  1. PARAGARD 380A [Suspect]
     Indication: POST COITAL CONTRACEPTION
     Route: 015

REACTIONS (2)
  - Complication of device insertion [Recovered/Resolved]
  - Device expulsion [Recovered/Resolved]
